FAERS Safety Report 4629065-9 (Version None)
Quarter: 2005Q2

REPORT INFORMATION
  Report Type: 
  Country: None (occurrence: None)
  Receive Date: 20050404
  Receipt Date: 20050404
  Transmission Date: 20051028
  Serious: Yes (Other)
  Sender: FDA-Public Use
  Company Number: None

PATIENT
  Age: 46 Year
  Sex: Male
  Weight: 74.8435 kg

DRUGS (1)
  1. NEURONTIN [Suspect]
     Indication: MOOD ALTERED
     Dosage: 400MG TWICE DAILY,1200 MG BEDTIME

REACTIONS (1)
  - NO ADVERSE EFFECT [None]
